FAERS Safety Report 4368564-4 (Version None)
Quarter: 2004Q2

REPORT INFORMATION
  Report Type: 
  Country: None (occurrence: None)
  Receive Date: 20040528
  Receipt Date: 20040518
  Transmission Date: 20050107
  Serious: No
  Sender: FDA-Public Use
  Company Number: RENA-11040

PATIENT
  Age: 66 Year
  Sex: Male

DRUGS (8)
  1. PHOSBLOCK - 250 MG TABLET [Suspect]
     Indication: HYPERPHOSPHATAEMIA
     Dosage: 1.75 G DAILY PO
     Route: 048
     Dates: start: 20031008, end: 20040422
  2. METHYLDOPA [Concomitant]
  3. ATENOLOL [Concomitant]
  4. TEPRENONE [Concomitant]
  5. ESTAZOLAM [Concomitant]
  6. INSULIN [Concomitant]
  7. SENNOSIDE [Concomitant]
  8. SODIUM POLYSTYRENE SULFONATE [Concomitant]

REACTIONS (3)
  - AORTIC VALVE CALCIFICATION [None]
  - AORTIC VALVE INCOMPETENCE [None]
  - CHEST PAIN [None]
